FAERS Safety Report 4485804-1 (Version None)
Quarter: 2004Q4

REPORT INFORMATION
  Report Type: 
  Country: None (occurrence: None)
  Receive Date: 20041021
  Receipt Date: 20041001
  Transmission Date: 20050328
  Serious: Yes (Other)
  Sender: FDA-Public Use
  Company Number: 2004-120842-NL

PATIENT

DRUGS (1)
  1. ZEMURON [Suspect]
     Indication: SURGERY
     Dosage: 2 MG
     Dates: start: 20041001, end: 20041001

REACTIONS (3)
  - COMA [None]
  - DELAYED RECOVERY FROM ANAESTHESIA [None]
  - LOSS OF CONSCIOUSNESS [None]
